FAERS Safety Report 9791415 (Version 1)
Quarter: 2014Q1

REPORT INFORMATION
  Report Type: Spontaneous
  Country: IE (occurrence: IE)
  Receive Date: 20140101
  Receipt Date: 20140101
  Transmission Date: 20141002
  Serious: Yes (Death)
  Sender: FDA-Public Use
  Company Number: IE-AMGEN-IRLSP2013091073

PATIENT
  Sex: 0

DRUGS (3)
  1. NEULASTA [Suspect]
     Indication: COLON CANCER
     Dosage: 6 MG/0.6 ML, AFTER CHEMO 3 WEEKLY
     Route: 058
     Dates: start: 20131205
  2. PHOSPHATE SANDOZ [Concomitant]
     Dosage: UNK
  3. CARBOPLATIN [Concomitant]
     Dosage: UNK

REACTIONS (1)
  - Death [Fatal]
